FAERS Safety Report 18202035 (Version 1)
Quarter: 2020Q3

REPORT INFORMATION
  Report Type: Spontaneous
  Country: IT (occurrence: IT)
  Receive Date: 20200827
  Receipt Date: 20200827
  Transmission Date: 20201103
  Serious: Yes (Death, Life-Threatening, Hospitalization)
  Sender: FDA-Public Use
  Company Number: IT-STRIDES ARCOLAB LIMITED-2020SP009698

PATIENT
  Age: 75 Year
  Sex: Male

DRUGS (3)
  1. TACROLIMUS. [Suspect]
     Active Substance: TACROLIMUS
     Indication: RENAL TRANSPLANT
     Dosage: UNK (MAINTENANCE)
     Route: 065
  2. THYMO [Suspect]
     Active Substance: HERBALS
     Indication: RENAL TRANSPLANT
     Dosage: UNK
     Route: 065
  3. MYCOPHENOLATE MOFETIL. [Suspect]
     Active Substance: MYCOPHENOLATE MOFETIL
     Indication: RENAL TRANSPLANT
     Dosage: UNK (MAINTENANCE)
     Route: 065

REACTIONS (8)
  - Respiratory failure [Fatal]
  - COVID-19 pneumonia [Unknown]
  - Lung opacity [Unknown]
  - Myalgia [Unknown]
  - Dyspnoea [Unknown]
  - Cough [Unknown]
  - Pyrexia [Unknown]
  - COVID-19 [Unknown]

NARRATIVE: CASE EVENT DATE: 202003
